FAERS Safety Report 7433172-5 (Version None)
Quarter: 2011Q2

REPORT INFORMATION
  Report Type: 
  Country: None (occurrence: None)
  Receive Date: 20110415
  Receipt Date: 20110407
  Transmission Date: 20111010
  Serious: Yes (Hospitalization)
  Sender: FDA-Public Use
  Company Number: 2011SP015815

PATIENT
  Age: 66 Year
  Sex: Male

DRUGS (1)
  1. INTEGRILIN [Suspect]
     Indication: ANTIPLATELET THERAPY

REACTIONS (1)
  - URTICARIA [None]
